FAERS Safety Report 16880067 (Version 1)
Quarter: 2019Q4

REPORT INFORMATION
  Report Type: Spontaneous
  Country: US (occurrence: US)
  Receive Date: 20191003
  Receipt Date: 20191003
  Transmission Date: 20200122
  Serious: No
  Sender: FDA-Public Use
  Company Number: US-DRREDDYS-USA/USA/19/0114513

PATIENT
  Sex: Female
  Weight: 47.25 kg

DRUGS (4)
  1. LOVASTATIN. [Concomitant]
     Active Substance: LOVASTATIN
     Indication: PRODUCT USED FOR UNKNOWN INDICATION
     Dosage: AT NIGHT
     Route: 048
  2. METFORMIN [Concomitant]
     Active Substance: METFORMIN HYDROCHLORIDE
     Indication: PRODUCT USED FOR UNKNOWN INDICATION
     Route: 048
  3. LISINOPRIL. [Concomitant]
     Active Substance: LISINOPRIL
     Indication: PRODUCT USED FOR UNKNOWN INDICATION
     Route: 048
  4. HABITROL [Suspect]
     Active Substance: NICOTINE
     Indication: TOBACCO USER
     Dosage: MORNING ONE PATCH AND NIGHT ONE PATCH
     Route: 062
     Dates: start: 201807

REACTIONS (2)
  - Treatment noncompliance [Recovered/Resolved]
  - Weight increased [Recovered/Resolved]
